FAERS Safety Report 25281697 (Version 1)
Quarter: 2025Q2

REPORT INFORMATION
  Report Type: Report from Study
  Country: GB (occurrence: GB)
  Receive Date: 20250508
  Receipt Date: 20250508
  Transmission Date: 20250716
  Serious: Yes (Hospitalization, Other)
  Sender: AMGEN
  Company Number: GB-AMGEN-GBRSL2024244635

PATIENT
  Age: 53 Year
  Sex: Female

DRUGS (1)
  1. ADALIMUMAB [Suspect]
     Active Substance: ADALIMUMAB
     Indication: Ankylosing spondylitis
     Dosage: 40 MILLIGRAM, Q2WK
     Route: 065
     Dates: start: 20241125

REACTIONS (24)
  - Ankylosing spondylitis [Recovered/Resolved]
  - Mast cell activation syndrome [Unknown]
  - Cataract [Unknown]
  - Uveitis [Not Recovered/Not Resolved]
  - Feeling hot [Recovered/Resolved]
  - Dizziness [Unknown]
  - Drug ineffective [Unknown]
  - Cystitis [Unknown]
  - Flushing [Recovered/Resolved]
  - Infection [Recovered/Resolved]
  - Influenza [Unknown]
  - Eye infection [Unknown]
  - Urinary tract infection [Recovered/Resolved]
  - Abdominal discomfort [Unknown]
  - Complex regional pain syndrome [Unknown]
  - Dyslexia [Unknown]
  - Ehlers-Danlos syndrome [Unknown]
  - Ill-defined disorder [Unknown]
  - Mouth ulceration [Unknown]
  - Musculoskeletal chest pain [Unknown]
  - Sciatica [Unknown]
  - Constipation [Unknown]
  - Malaise [Unknown]
  - Oropharyngeal pain [Unknown]

NARRATIVE: CASE EVENT DATE: 20240101
